FAERS Safety Report 14535445 (Version 1)
Quarter: 2018Q1

REPORT INFORMATION
  Report Type: Spontaneous
  Country: IT (occurrence: IT)
  Receive Date: 20180215
  Receipt Date: 20180215
  Transmission Date: 20180509
  Serious: Yes (Death, Other)
  Sender: FDA-Public Use
  Company Number: IT-MYLANLABS-2018M1009704

PATIENT
  Age: 68 Year
  Sex: Male

DRUGS (5)
  1. DELTACORTENE [Suspect]
     Active Substance: PREDNISONE
     Dosage: UNK
     Route: 048
  2. AZATHIOPRINE. [Suspect]
     Active Substance: AZATHIOPRINE
     Indication: PEMPHIGUS
     Dosage: UNK
     Route: 065
  3. RITUXIMAB. [Suspect]
     Active Substance: RITUXIMAB
     Indication: PEMPHIGUS
     Dosage: 375 MG/M2, QW
     Route: 042
  4. IMMUNOGLOBULIN (IMMUNOGLOBULIN HUMAN NORMAL) [Suspect]
     Active Substance: HUMAN IMMUNOGLOBULIN G
     Indication: PEMPHIGUS
     Dosage: UNK
     Route: 041
  5. DELTACORTENE [Suspect]
     Active Substance: PREDNISONE
     Indication: PEMPHIGUS
     Dosage: UNK
     Route: 048

REACTIONS (8)
  - Septic shock [Fatal]
  - Off label use [Unknown]
  - Kaposi^s sarcoma [Recovering/Resolving]
  - Pemphigus [Not Recovered/Not Resolved]
  - Pneumonia acinetobacter [Fatal]
  - Multiple organ dysfunction syndrome [None]
  - Therapy partial responder [Unknown]
  - Intentional product use issue [Unknown]
